FAERS Safety Report 4297567-3 (Version None)
Quarter: 2004Q1

REPORT INFORMATION
  Report Type: 
  Country: None (occurrence: None)
  Receive Date: 20040218
  Receipt Date: 20040210
  Transmission Date: 20041129
  Serious: Yes (Death, Hospitalization)
  Sender: FDA-Public Use
  Company Number: PHBS2004IN02054

PATIENT
  Age: 3 Year
  Sex: Female

DRUGS (2)
  1. CYCLOSPORINE [Suspect]
     Indication: LIVER TRANSPLANT
     Dosage: 65 MG, BID
     Route: 065
  2. PREDNISOLONE [Concomitant]
     Dosage: 2.5 MG, BID

REACTIONS (17)
  - BRAIN DEATH [None]
  - CARDIAC ARREST [None]
  - CARDIO-RESPIRATORY ARREST [None]
  - COMA [None]
  - DRUG LEVEL ABOVE THERAPEUTIC [None]
  - DRUG TOXICITY [None]
  - ELECTROENCEPHALOGRAM ABNORMAL [None]
  - GRAND MAL CONVULSION [None]
  - HEADACHE [None]
  - HYPERNATRAEMIA [None]
  - HYPOMAGNESAEMIA [None]
  - LIFE SUPPORT [None]
  - METABOLIC ACIDOSIS [None]
  - NEUROTOXICITY [None]
  - RESPIRATORY ALKALOSIS [None]
  - SOMNOLENCE [None]
  - VOMITING [None]
